FAERS Safety Report 15910027 (Version 3)
Quarter: 2019Q1

REPORT INFORMATION
  Report Type: Report from Study
  Country: CN (occurrence: CN)
  Receive Date: 20190204
  Receipt Date: 20190227
  Transmission Date: 20190417
  Serious: Yes (Hospitalization)
  Sender: FDA-Public Use
  Company Number: CN-AMGEN-CHNCT2019015520

PATIENT
  Age: 53 Year
  Sex: Male
  Weight: 66 kg

DRUGS (10)
  1. BLINDED CINACALCET HCL [Suspect]
     Active Substance: CINACALCET HYDROCHLORIDE
     Dosage: UNK
     Route: 065
     Dates: start: 20190215
  2. BLINDED ETELCALCETIDE [Suspect]
     Active Substance: ETELCALCETIDE
     Indication: HYPERPARATHYROIDISM SECONDARY
     Dosage: UNK
     Route: 065
     Dates: start: 20180919
  3. LEVOCARNITINE. [Concomitant]
     Active Substance: LEVOCARNITINE
     Dosage: 1 G, UNK
     Route: 042
     Dates: start: 20170731
  4. BLINDED ETELCALCETIDE [Suspect]
     Active Substance: ETELCALCETIDE
     Dosage: UNK
     Route: 065
     Dates: start: 20190215
  5. CEFPROZIL. [Concomitant]
     Active Substance: CEFPROZIL
     Dosage: 0.25 G, UNK
     Route: 048
     Dates: start: 20190125
  6. CALCIUM CARBONATE W/COLECALCIFEROL [Concomitant]
     Active Substance: CALCIUM CARBONATE\CHOLECALCIFEROL
     Dosage: 1 TO 2 UNK, UNK (600MG/125 IU)
     Route: 048
     Dates: start: 20170731
  7. RECOMBINANT HUMAN ERYTHROPOIETIN [Concomitant]
     Active Substance: ERYTHROPOIETIN
     Dosage: 10000 UNK, UNK
     Route: 058
     Dates: start: 20170731
  8. ASPIRIN. [Concomitant]
     Active Substance: ASPIRIN
     Dosage: 0.1 G, UNK
     Route: 048
     Dates: start: 2011
  9. NIFEDIPINE. [Concomitant]
     Active Substance: NIFEDIPINE
     Dosage: 1 UNK, UNK AND 10 MG, BID
     Route: 048
     Dates: start: 20190125, end: 20190209
  10. BLINDED CINACALCET HCL [Suspect]
     Active Substance: CINACALCET HYDROCHLORIDE
     Indication: HYPERPARATHYROIDISM SECONDARY
     Dosage: UNK
     Route: 065
     Dates: start: 20180919

REACTIONS (2)
  - Gastric ulcer haemorrhage [Recovered/Resolved]
  - Pneumonia [Recovered/Resolved]

NARRATIVE: CASE EVENT DATE: 20190129
